FAERS Safety Report 7301185-X (Version None)
Quarter: 2011Q1

REPORT INFORMATION
  Report Type: 
  Country: None (occurrence: None)
  Receive Date: 20110112
  Receipt Date: 20090512
  Transmission Date: 20110831
  Serious: Yes (Hospitalization)
  Sender: FDA-Public Use
  Company Number: THYM-1001045

PATIENT
  Age: 25 Year
  Sex: Male

DRUGS (4)
  1. PROGRAF [Concomitant]
  2. THYMOGLOBULIN [Suspect]
     Indication: LIVER TRANSPLANT REJECTION
     Dosage: 100 MG, QD
     Dates: start: 20090424
  3. CELLCEPT [Concomitant]
  4. METHYLPREDNISOLONE [Concomitant]

REACTIONS (2)
  - SERUM SICKNESS [None]
  - THERAPEUTIC RESPONSE DECREASED [None]
